FAERS Safety Report 13624291 (Version 1)
Quarter: 2017Q2

REPORT INFORMATION
  Report Type: Spontaneous
  Country: CA (occurrence: CA)
  Receive Date: 20170608
  Receipt Date: 20170608
  Transmission Date: 20170830
  Serious: Yes (Hospitalization, Other)
  Sender: FDA-Public Use
  Company Number: CA-ASTRAZENECA-2017SE57828

PATIENT
  Age: 62 Year
  Sex: Female
  Weight: 54.4 kg

DRUGS (2)
  1. ASPIRIN. [Concomitant]
     Active Substance: ASPIRIN
  2. CRESTOR [Suspect]
     Active Substance: ROSUVASTATIN CALCIUM
     Indication: BLOOD CHOLESTEROL ABNORMAL
     Dosage: 5.0MG UNKNOWN
     Route: 048

REACTIONS (8)
  - Pain in extremity [Recovered/Resolved]
  - Chest pain [Recovered/Resolved]
  - Insomnia [Recovered/Resolved]
  - Loss of personal independence in daily activities [Recovered/Resolved]
  - Anxiety [Recovered/Resolved]
  - Peripheral swelling [Recovered/Resolved]
  - Palpitations [Recovered/Resolved]
  - Musculoskeletal pain [Recovered/Resolved]
